FAERS Safety Report 7605554-X (Version None)
Quarter: 2011Q3

REPORT INFORMATION
  Report Type: 
  Country: None (occurrence: None)
  Receive Date: 20110713
  Receipt Date: 20110630
  Transmission Date: 20111222
  Serious: Yes (Hospitalization, Other)
  Sender: FDA-Public Use
  Company Number: US-BAYER-201015511NA

PATIENT
  Age: 14 Year
  Sex: Female

DRUGS (5)
  1. SINGULAIR [Concomitant]
  2. YASMIN [Suspect]
     Dosage: UNK
     Dates: start: 20040101, end: 20070101
  3. YASMIN [Suspect]
     Indication: PRODUCT USED FOR UNKNOWN INDICATION
     Route: 048
     Dates: end: 20050502
  4. BENTYL [Concomitant]
     Dosage: UNK
     Dates: start: 20040930
  5. DARVOCET [Concomitant]
     Dosage: UNK
     Dates: start: 20040930

REACTIONS (4)
  - CHOLELITHIASIS [None]
  - CHOLECYSTITIS CHRONIC [None]
  - CHOLECYSTECTOMY [None]
  - ABDOMINAL PAIN [None]
